FAERS Safety Report 8030031-4 (Version None)
Quarter: 2012Q1

REPORT INFORMATION
  Report Type: 
  Country: None (occurrence: None)
  Receive Date: 20120105
  Receipt Date: 20111222
  Transmission Date: 20120608
  Serious: Yes (Hospitalization, Other)
  Sender: FDA-Public Use
  Company Number: CIP11000749

PATIENT
  Age: 66 Year
  Sex: Female

DRUGS (10)
  1. VYTORIN (EZETIMIBE, SIMVASTATIN), 10/80 MG [Concomitant]
  2. ARTHROTEC [Concomitant]
  3. ACTONEL [Suspect]
     Dosage: 150 MG ONCE MONTHLY, ORAL
     Route: 048
     Dates: start: 20090801
  4. FOSAMAX [Suspect]
     Route: 048
     Dates: start: 19950101, end: 20100101
  5. FEXOFENADINE (FEXOFENADINE), 180 MG [Concomitant]
  6. SINGULAIR (MONTELUKAST SODIUM) 10 MG [Concomitant]
  7. MIRAPEX (PRAMIPEXOLE DIHYDROCHLORIDE), 0.5 MG [Concomitant]
  8. CLONAZEPAM [Concomitant]
  9. BACLOFEN [Concomitant]
  10. LEVOTHYROXINE (LEVOTHYROXINE), 75 MG [Concomitant]

REACTIONS (8)
  - ARTHRALGIA [None]
  - OSTEOMYELITIS [None]
  - OSTEONECROSIS OF JAW [None]
  - OSTEOSCLEROSIS [None]
  - PRIMARY SEQUESTRUM [None]
  - BONE LOSS [None]
  - PROCEDURAL PAIN [None]
  - EXPOSED BONE IN JAW [None]
